FAERS Safety Report 6754674-0 (Version None)
Quarter: 2010Q2

REPORT INFORMATION
  Report Type: 
  Country: None (occurrence: None)
  Receive Date: 20100603
  Receipt Date: 20100521
  Transmission Date: 20101027
  Serious: Yes (Other)
  Sender: FDA-Public Use
  Company Number: DE-MYLANLABS-2010S1009228

PATIENT
  Age: 33 Year
  Sex: Male
  Weight: 120 kg

DRUGS (6)
  1. CARBAMAZEPINE [Suspect]
     Indication: EPILEPSY
     Dosage: 0.5-0-1 DF/D
     Route: 048
     Dates: end: 20100315
  2. LAMOTRIGINE [Suspect]
     Indication: EPILEPSY
     Dosage: 0.5-0-0. DF/D
     Route: 048
  3. METFORMIN [Suspect]
     Indication: TYPE 2 DIABETES MELLITUS
     Dosage: DAILY DOSE: 2 DF DOSAGE FORM EVERY DAY
     Route: 048
     Dates: start: 20100310
  4. BEZAFIBRAT [Suspect]
     Indication: DYSLIPIDAEMIA
     Dosage: DAILY DOSE: 400 MG MILLIGRAM(S) EVERY DAY
     Route: 048
     Dates: start: 20100312
  5. TIMOX /00371202/ [Suspect]
     Indication: EPILEPSY
     Dosage: 0.5-0-1 DF/D
     Route: 048
     Dates: start: 20100315
  6. LANTUS /01483501/ [Suspect]
     Indication: TYPE 2 DIABETES MELLITUS
     Dosage: DAILY DOSE: 26 IU INTERNATIONAL UNIT(S) EVERY DAY
     Route: 058
     Dates: start: 20100315

REACTIONS (1)
  - HYPERLIPIDAEMIA [None]
